FAERS Safety Report 24035490 (Version 3)
Quarter: 2024Q3

REPORT INFORMATION
  Report Type: Report from Study
  Country: CA (occurrence: CA)
  Receive Date: 20240701
  Receipt Date: 20240903
  Transmission Date: 20241017
  Serious: Yes (Hospitalization)
  Sender: OTSUKA
  Company Number: CA-OTSUKA-2024_018107

PATIENT
  Sex: Male

DRUGS (1)
  1. ARIPIPRAZOLE [Suspect]
     Active Substance: ARIPIPRAZOLE
     Indication: Schizoaffective disorder
     Dosage: 400 MG, EVERY 28 DAYS (EVERY 4 WEEKS)
     Route: 030
     Dates: start: 20240329

REACTIONS (5)
  - Mania [Not Recovered/Not Resolved]
  - Product use in unapproved indication [Unknown]
  - Therapy partial responder [Unknown]
  - Drug resistance [Unknown]
  - Product dose omission issue [Not Recovered/Not Resolved]
